FAERS Safety Report 19209764 (Version 2)
Quarter: 2021Q2

REPORT INFORMATION
  Report Type: Spontaneous
  Country: GB (occurrence: GB)
  Receive Date: 20210503
  Receipt Date: 20210513
  Transmission Date: 20210717
  Serious: Yes (Life-Threatening, Hospitalization, Other)
  Sender: FDA-Public Use
  Company Number: GB-AUROBINDO-AUR-APL-2021-016957

PATIENT
  Age: 64 Year
  Sex: Male

DRUGS (4)
  1. FLECAINIDE [Suspect]
     Active Substance: FLECAINIDE
     Indication: ATRIAL FIBRILLATION
     Dosage: 100 MILLIGRAM, AS NECESSARY
     Route: 065
  2. RAMIPRIL. [Concomitant]
     Active Substance: RAMIPRIL
     Indication: PRODUCT USED FOR UNKNOWN INDICATION
     Dosage: 2.5 MILLIGRAM, ONCE A DAY
     Route: 065
  3. RIVAROXABAN [Concomitant]
     Active Substance: RIVAROXABAN
     Indication: ANTICOAGULANT THERAPY
     Dosage: 20 MILLIGRAM, ONCE A DAY (NIGHT)
     Route: 065
  4. ROSUVASTATIN. [Concomitant]
     Active Substance: ROSUVASTATIN
     Indication: PRODUCT USED FOR UNKNOWN INDICATION
     Dosage: 5 MILLIGRAM, ONCE A DAY (NIGHT)
     Route: 065

REACTIONS (3)
  - Ejection fraction decreased [Recovered/Resolved]
  - Ventricular tachycardia [Recovered/Resolved]
  - Ventricular extrasystoles [Recovered/Resolved]
